FAERS Safety Report 5849835-9 (Version None)
Quarter: 2008Q3

REPORT INFORMATION
  Report Type: 
  Country: None (occurrence: None)
  Receive Date: 20080818
  Receipt Date: 20080818
  Transmission Date: 20090109
  Serious: Yes (Death)
  Sender: FDA-Public Use
  Company Number: None

PATIENT
  Sex: Female
  Weight: 65.7716 kg

DRUGS (4)
  1. FENTANYL TRANSDERMAL SYSTEM [Suspect]
     Indication: MIGRAINE
     Dosage: ONE PATCH EVERY 3 DAYS TRANSDERMAL
     Route: 062
     Dates: start: 20080403, end: 20080404
  2. PROMETHAZINE [Concomitant]
  3. TEMAZEPAM [Concomitant]
  4. DIPHENHYDRAMINE HCL [Concomitant]

REACTIONS (2)
  - ACCIDENTAL EXPOSURE [None]
  - DRUG TOXICITY [None]
